FAERS Safety Report 10356887 (Version 1)
Quarter: 2014Q3

REPORT INFORMATION
  Report Type: Spontaneous
  Country: DE (occurrence: DE)
  Receive Date: 20140801
  Receipt Date: 20140801
  Transmission Date: 20150326
  Serious: Yes (Death)
  Sender: FDA-Public Use
  Company Number: PHHY2014DE093136

PATIENT
  Age: 38 Year

DRUGS (5)
  1. CYTARABIN [Concomitant]
     Active Substance: CYTARABINE
     Dosage: 2000 MG/M2, [D-35 TO D-34]
     Route: 042
  2. NILOTINIB [Suspect]
     Active Substance: NILOTINIB
     Indication: BLAST CRISIS IN MYELOGENOUS LEUKAEMIA
     Dosage: 400 MG, BID
  3. DEXAMETHASONE. [Concomitant]
     Active Substance: DEXAMETHASONE
     Indication: LEUKAEMIA RECURRENT
  4. METHOTREXATE [Concomitant]
     Active Substance: METHOTREXATE
     Indication: LEUKAEMIA RECURRENT
     Dosage: 15 MG
     Route: 037
  5. CYTARABIN [Concomitant]
     Active Substance: CYTARABINE
     Indication: LEUKAEMIA RECURRENT
     Dosage: 40 MG
     Route: 037

REACTIONS (2)
  - Chloroma [Fatal]
  - Malignant neoplasm progression [Fatal]
